FAERS Safety Report 5234252-5 (Version None)
Quarter: 2007Q1

REPORT INFORMATION
  Report Type: 
  Country: None (occurrence: None)
  Receive Date: 20070207
  Receipt Date: 20061214
  Transmission Date: 20070707
  Serious: Yes (Death, Other)
  Sender: FDA-Public Use
  Company Number: MC200600743

PATIENT
  Age: 81 Year
  Sex: Female

DRUGS (1)
  1. ANGIOMAX [Suspect]
     Indication: CORONARY ARTERY BYPASS
     Dosage: SEE IMAGE
     Route: 040
     Dates: start: 20061024, end: 20061024

REACTIONS (6)
  - CARDIAC FAILURE CONGESTIVE [None]
  - CORONARY ARTERY THROMBOSIS [None]
  - DISSEMINATED INTRAVASCULAR COAGULATION [None]
  - HAEMATOMA [None]
  - HEPARIN-INDUCED THROMBOCYTOPENIA [None]
  - VENTRICULAR FIBRILLATION [None]
